FAERS Safety Report 8812690 (Version 3)
Quarter: 2012Q4

REPORT INFORMATION
  Report Type: 
  Country: US (occurrence: US)
  Receive Date: 20120927
  Receipt Date: 20121031
  Transmission Date: 20130627
  Serious: No
  Sender: FDA-Public Use
  Company Number: US-009507513-1209USA008977

PATIENT
  Age: 69 Year
  Sex: Female
  Weight: 58.5 kg

DRUGS (2)
  1. MIRALAX [Suspect]
     Indication: CONSTIPATION
     Dosage: UNK, Unknown
     Route: 048
  2. SINGULAIR [Concomitant]
     Indication: RHINITIS SEASONAL
     Dosage: UNK, Unknownu

REACTIONS (2)
  - Abdominal distension [Recovered/Resolved]
  - Drug ineffective [Unknown]
